FAERS Safety Report 7746353-8 (Version None)
Quarter: 2011Q3

REPORT INFORMATION
  Report Type: 
  Country: None (occurrence: None)
  Receive Date: 20110913
  Receipt Date: 20110901
  Transmission Date: 20111222
  Serious: Yes (Other)
  Sender: FDA-Public Use
  Company Number: JP-SANOFI-AVENTIS-2011SA053266

PATIENT
  Age: 72 Year
  Sex: Male
  Weight: 50.8 kg

DRUGS (6)
  1. MANNITOL [Concomitant]
     Indication: PREMEDICATION
     Route: 041
     Dates: start: 20101111, end: 20101216
  2. CISPLATIN [Concomitant]
     Route: 041
     Dates: start: 20101111, end: 20101216
  3. DOCETAXEL [Suspect]
     Dosage: TAKEN ON ONE DAY EVERY WEEK
     Route: 041
     Dates: start: 20101111, end: 20101216
  4. GRANISETRON [Concomitant]
     Indication: PREMEDICATION
     Route: 041
     Dates: start: 20101111, end: 20101216
  5. THERAPEUTIC RADIOPHARMACEUTICALS [Suspect]
     Dosage: 46 GRAY DOSE OF RADIOTHERAPY WAS ADMINISTERED.
     Route: 065
     Dates: start: 20101111, end: 20101216
  6. DEXAMETHASONE SODIUM PHOSPHATE [Concomitant]
     Indication: PREMEDICATION
     Route: 041
     Dates: start: 20101111, end: 20101216

REACTIONS (4)
  - STRESS CARDIOMYOPATHY [None]
  - MALAISE [None]
  - DIZZINESS [None]
  - PLEURAL EFFUSION [None]
